APPROVED DRUG PRODUCT: FINACEA
Active Ingredient: AZELAIC ACID
Strength: 15%
Dosage Form/Route: AEROSOL, FOAM;TOPICAL
Application: N207071 | Product #001
Applicant: LEO PHARMA AS
Approved: Jul 29, 2015 | RLD: Yes | RS: Yes | Type: RX

PATENTS:
Patent 10117812 | Expires: Oct 18, 2027
Patent 9211259 | Expires: Feb 28, 2029
Patent 9265725 | Expires: Dec 8, 2027
Patent 7700076 | Expires: Sep 18, 2027